FAERS Safety Report 9358789 (Version 1)
Quarter: 2013Q2

REPORT INFORMATION
  Report Type: Spontaneous
  Country: FI (occurrence: FI)
  Receive Date: 20130620
  Receipt Date: 20130620
  Transmission Date: 20140414
  Serious: Yes (Death)
  Sender: FDA-Public Use
  Company Number: FI-BAYER-2013-074311

PATIENT
  Age: 32 Year
  Sex: Female

DRUGS (6)
  1. YASMIN [Suspect]
     Indication: CONTRACEPTION
     Dosage: UNK
     Route: 048
  2. QUETIAPINE [Concomitant]
     Indication: BIPOLAR DISORDER
     Dosage: 25 MG, TID
     Route: 048
  3. QUETIAPINE [Concomitant]
     Indication: BIPOLAR DISORDER
     Dosage: 100 MG, UNK
  4. LAMOTRIGIN [Concomitant]
     Dosage: 50 MG, BID
     Route: 048
  5. ABILIFY [Concomitant]
     Dosage: 15 MG, QD
     Route: 048
  6. SERTRALIN [Concomitant]
     Dosage: 50 MG, QD
     Route: 048

REACTIONS (2)
  - Deep vein thrombosis [Fatal]
  - Pulmonary embolism [Fatal]
